FAERS Safety Report 4292291-5 (Version None)
Quarter: 2004Q1

REPORT INFORMATION
  Report Type: 
  Country: None (occurrence: None)
  Receive Date: 20040211
  Receipt Date: 20040203
  Transmission Date: 20041129
  Serious: Yes (Hospitalization)
  Sender: FDA-Public Use
  Company Number: FR-ROCHE-357941

PATIENT
  Age: 59 Year
  Sex: Male

DRUGS (2)
  1. ROCEPHIN [Suspect]
     Indication: BRONCHIAL INFECTION
     Route: 030
     Dates: start: 20031226, end: 20031227
  2. MUXOL [Suspect]
     Indication: BRONCHIAL INFECTION
     Route: 048
     Dates: start: 20031226, end: 20031227

REACTIONS (2)
  - LEUKOCYTOCLASTIC VASCULITIS [None]
  - VASCULAR PURPURA [None]
